FAERS Safety Report 10872206 (Version 1)
Quarter: 2015Q1

REPORT INFORMATION
  Report Type: Spontaneous
  Country: US (occurrence: None)
  Receive Date: 20150223
  Receipt Date: 20150223
  Transmission Date: 20150721
  Serious: No
  Sender: FDA-Public Use
  Company Number: None

PATIENT
  Age: 35 Year
  Sex: Female

DRUGS (1)
  1. MIRVASO [Suspect]
     Active Substance: BRIMONIDINE TARTRATE
     Indication: ROSACEA
     Dosage: APPLIED TO A SURFACE, USUALLY THE SKIN
     Dates: start: 20141126, end: 20150206

REACTIONS (4)
  - Headache [None]
  - Condition aggravated [None]
  - Pain [None]
  - Erythema [None]

NARRATIVE: CASE EVENT DATE: 20150206
